FAERS Safety Report 10431119 (Version 1)
Quarter: 2014Q3

REPORT INFORMATION
  Report Type: Report from Study
  Country: BR (occurrence: BR)
  Receive Date: 20140904
  Receipt Date: 20140904
  Transmission Date: 20150326
  Serious: Yes (Death)
  Sender: FDA-Public Use
  Company Number: PHHY2014BR111836

PATIENT
  Age: 87 Year
  Sex: Male

DRUGS (3)
  1. EXELON PATCH [Suspect]
     Active Substance: RIVASTIGMINE
     Dosage: 2 DF (2 ADHESIVES), DAILY
     Route: 062
  2. EXELON PATCH [Suspect]
     Active Substance: RIVASTIGMINE
     Dosage: UNK UKN, UNK
     Route: 062
  3. EXELON PATCH [Suspect]
     Active Substance: RIVASTIGMINE
     Indication: DEMENTIA ALZHEIMER^S TYPE
     Dosage: 1 DF (1 ADHESIVE), DAILY
     Route: 062
     Dates: start: 201405

REACTIONS (6)
  - Anger [Unknown]
  - Dizziness [Unknown]
  - Death [Fatal]
  - Nausea [Unknown]
  - Drug administration error [Unknown]
  - Weight decreased [Unknown]

NARRATIVE: CASE EVENT DATE: 20140708
